FAERS Safety Report 5104297-4 (Version None)
Quarter: 2006Q3

REPORT INFORMATION
  Report Type: 
  Country: None (occurrence: None)
  Receive Date: 20060912
  Receipt Date: 20060912
  Transmission Date: 20061208
  Serious: No
  Sender: FDA-Public Use
  Company Number: None

PATIENT
  Age: 58 Year
  Sex: Female
  Weight: 65.318 kg

DRUGS (1)
  1. ESTRADIOL [Suspect]
     Indication: HYSTERECTOMY
     Dosage: 0.045    1 PATCH BI-WEEKLY   TRANSDERMAL
     Route: 062
     Dates: start: 20040213, end: 20040228

REACTIONS (1)
  - RASH [None]
